FAERS Safety Report 11048108 (Version 1)
Quarter: 2015Q2

REPORT INFORMATION
  Report Type: Spontaneous
  Country: IT (occurrence: IT)
  Receive Date: 20150420
  Receipt Date: 20150420
  Transmission Date: 20150821
  Serious: Yes (Hospitalization)
  Sender: FDA-Public Use
  Company Number: IT-ELI_LILLY_AND_COMPANY-IT201504002837

PATIENT
  Age: 44 Year
  Sex: Male

DRUGS (1)
  1. ZYPADHERA [Suspect]
     Active Substance: OLANZAPINE PAMOATE
     Indication: SCHIZOPHRENIA
     Dosage: 210 MG, TOTAL
     Route: 030
     Dates: start: 20150119, end: 20150119

REACTIONS (5)
  - Blood creatine phosphokinase increased [Unknown]
  - Disorientation [Recovered/Resolved]
  - White blood cell count increased [Unknown]
  - Delirium [Recovered/Resolved]
  - Psychomotor hyperactivity [Recovered/Resolved]

NARRATIVE: CASE EVENT DATE: 20150119
